FAERS Safety Report 8066775-8 (Version None)
Quarter: 2012Q1

REPORT INFORMATION
  Report Type: 
  Country: None (occurrence: None)
  Receive Date: 20120124
  Receipt Date: 20120117
  Transmission Date: 20120608
  Serious: Yes (Hospitalization)
  Sender: FDA-Public Use
  Company Number: US-BAYER-2011-022557

PATIENT
  Age: 42 Year
  Sex: Female
  Weight: 113 kg

DRUGS (14)
  1. INDERAL [Concomitant]
     Indication: HEADACHE
  2. MAXZIDE [Concomitant]
     Indication: BLOOD PRESSURE MANAGEMENT
  3. PRILOSEC [Concomitant]
     Indication: GASTROOESOPHAGEAL REFLUX DISEASE
  4. SYNTHROID [Concomitant]
     Indication: HYPOTHYROIDISM
  5. MAXZIDE [Concomitant]
     Indication: FLUID RETENTION
  6. DIODAN [Concomitant]
     Indication: BLOOD PRESSURE MANAGEMENT
  7. FENOFIBRATE [Concomitant]
     Indication: BLOOD CHOLESTEROL ABNORMAL
  8. YAZ [Suspect]
     Indication: PREMENSTRUAL SYNDROME
     Dosage: UNK
     Route: 048
     Dates: start: 20071013, end: 20080425
  9. ASPIRIN [Concomitant]
     Indication: THROMBOSIS
  10. ZOLOFT [Concomitant]
     Indication: ANTIDEPRESSANT THERAPY
  11. ABILIFY [Concomitant]
     Indication: ANTIDEPRESSANT THERAPY
  12. AMBIEN [Concomitant]
     Indication: SLEEP DISORDER THERAPY
  13. INDERAL [Concomitant]
     Indication: BLOOD PRESSURE MANAGEMENT
  14. WELLBUTRIN [Concomitant]
     Indication: ANTIDEPRESSANT THERAPY

REACTIONS (4)
  - INJURY [None]
  - PAIN IN EXTREMITY [None]
  - DEEP VEIN THROMBOSIS [None]
  - OEDEMA PERIPHERAL [None]
